FAERS Safety Report 18774659 (Version 1)
Quarter: 2021Q1

REPORT INFORMATION
  Report Type: Spontaneous
  Country: FR (occurrence: FR)
  Receive Date: 20210122
  Receipt Date: 20210122
  Transmission Date: 20210419
  Serious: Yes (Other)
  Sender: FDA-Public Use
  Company Number: FR-ACCORD-215149

PATIENT
  Age: 70 Year
  Sex: Male
  Weight: 82 kg

DRUGS (6)
  1. ESOMEPRAZOLE/ESOMEPRAZOLE MAGNESIUM/ESOMEPRAZOLE SODIUM [Concomitant]
     Active Substance: ESOMEPRAZOLE
  2. ELIQUIS [Concomitant]
     Active Substance: APIXABAN
  3. PREDNISOLONE. [Concomitant]
     Active Substance: PREDNISOLONE
  4. PERINDOPRIL [Concomitant]
     Active Substance: PERINDOPRIL
  5. AMIODARONE [Concomitant]
     Active Substance: AMIODARONE
  6. PACLITAXEL/PACLITAXEL LIPOSOME [Suspect]
     Active Substance: PACLITAXEL
     Indication: PHARYNGEAL NEOPLASM
     Route: 042
     Dates: start: 20201216, end: 20201216

REACTIONS (4)
  - Injection site erythema [Recovered/Resolved]
  - Off label use [Unknown]
  - Injection site extravasation [Recovered/Resolved]
  - Injection site oedema [Recovered/Resolved]

NARRATIVE: CASE EVENT DATE: 20201216
